FAERS Safety Report 8016811-X (Version None)
Quarter: 2012Q1

REPORT INFORMATION
  Report Type: 
  Country: None (occurrence: None)
  Receive Date: 20120102
  Receipt Date: 20111221
  Transmission Date: 20120608
  Serious: Yes (Other)
  Sender: FDA-Public Use
  Company Number: BR-BRISTOL-MYERS SQUIBB COMPANY-16322729

PATIENT
  Age: 59 Year
  Sex: Male

DRUGS (8)
  1. METFORMIN HCL [Suspect]
     Indication: TYPE 2 DIABETES MELLITUS
  2. CLONAZEPAM [Concomitant]
  3. SIMVASTATIN [Concomitant]
  4. OMEPRAZOLE [Concomitant]
  5. GLYBURIDE [Suspect]
  6. LOSARTAN POTASSIUM [Concomitant]
  7. CITALOPRAM HYDROBROMIDE [Concomitant]
  8. LOSARTAN POTASSIUM [Concomitant]

REACTIONS (2)
  - DIARRHOEA [None]
  - PROTEINURIA [None]
